FAERS Safety Report 9432052 (Version 1)
Quarter: 2013Q3

REPORT INFORMATION
  Report Type: Spontaneous
  Country: RU (occurrence: None)
  Receive Date: 20130726
  Receipt Date: 20130726
  Transmission Date: 20140515
  Serious: Yes (Other)
  Sender: FDA-Public Use
  Company Number: FK201302643

PATIENT
  Sex: Female

DRUGS (1)
  1. VALPROATE [Suspect]
     Indication: PETIT MAL EPILEPSY

REACTIONS (1)
  - Epilepsy [None]
